FAERS Safety Report 25465737 (Version 1)
Quarter: 2025Q2

REPORT INFORMATION
  Report Type: Spontaneous
  Country: PL (occurrence: PL)
  Receive Date: 20250623
  Receipt Date: 20250623
  Transmission Date: 20250717
  Serious: Yes (Hospitalization, Other)
  Sender: AUROBINDO
  Company Number: PL-JNJFOC-20250534103

PATIENT
  Age: 51 Year
  Sex: Female

DRUGS (5)
  1. SILDENAFIL [Suspect]
     Active Substance: SILDENAFIL
     Indication: Pulmonary arterial hypertension
     Route: 065
     Dates: start: 202201
  2. EPOPROSTENOL SODIUM [Suspect]
     Active Substance: EPOPROSTENOL SODIUM
     Indication: Pulmonary arterial hypertension
     Route: 042
     Dates: start: 202209
  3. BOSENTAN [Suspect]
     Active Substance: BOSENTAN
     Indication: Pulmonary arterial hypertension
     Route: 048
     Dates: start: 202202, end: 202211
  4. MACITENTAN [Suspect]
     Active Substance: MACITENTAN
     Indication: Pulmonary arterial hypertension
     Route: 048
     Dates: start: 202211
  5. ILOPROST [Suspect]
     Active Substance: ILOPROST
     Indication: Pulmonary arterial hypertension
     Route: 065
     Dates: start: 202205

REACTIONS (13)
  - Chronic respiratory failure [Unknown]
  - Hyperthyroidism [Unknown]
  - Oxygen saturation decreased [Unknown]
  - Large intestine polyp [Unknown]
  - Pleural thickening [Unknown]
  - Drug eruption [Unknown]
  - Lipoma [Unknown]
  - Therapy change [Unknown]
  - Colitis ulcerative [Unknown]
  - Pulmonary arterial hypertension [Unknown]
  - Liver injury [Recovered/Resolved]
  - Cardiac failure [Unknown]
  - N-terminal prohormone brain natriuretic peptide increased [Unknown]

NARRATIVE: CASE EVENT DATE: 20220201
